FAERS Safety Report 21566822 (Version 4)
Quarter: 2024Q2

REPORT INFORMATION
  Report Type: Report from Study
  Country: US (occurrence: US)
  Receive Date: 20221108
  Receipt Date: 20240503
  Transmission Date: 20240715
  Serious: Yes (Other)
  Sender: FDA-Public Use
  Company Number: US-ABBVIE-4134063

PATIENT
  Age: 64 Year
  Sex: Male
  Weight: 111.58 kg

DRUGS (6)
  1. HUMIRA [Suspect]
     Active Substance: ADALIMUMAB
     Indication: Colitis ulcerative
     Route: 058
  2. HUMIRA [Suspect]
     Active Substance: ADALIMUMAB
     Dosage: 40 MG
     Route: 058
  3. HUMIRA [Suspect]
     Active Substance: ADALIMUMAB
     Route: 058
     Dates: start: 20210224
  4. PFIZER-BIONTECH COVID-19 VACCINE [Concomitant]
     Active Substance: TOZINAMERAN
     Indication: COVID-19 immunisation
     Route: 030
     Dates: start: 20210317, end: 20210317
  5. PFIZER-BIONTECH COVID-19 VACCINE [Concomitant]
     Active Substance: TOZINAMERAN
     Indication: COVID-19 immunisation
     Route: 030
     Dates: start: 20210409, end: 20210409
  6. MODERNA COVID-19 VACCINE [Concomitant]
     Active Substance: ELASOMERAN
     Indication: COVID-19 immunisation
     Dosage: BOOSTER DOSE
     Route: 030
     Dates: start: 20211208, end: 20211208

REACTIONS (2)
  - Retinal tear [Recovered/Resolved]
  - Eye disorder [Unknown]

NARRATIVE: CASE EVENT DATE: 20220801
